FAERS Safety Report 5391841-5 (Version None)
Quarter: 2007Q3

REPORT INFORMATION
  Report Type: 
  Country: None (occurrence: None)
  Receive Date: 20070718
  Receipt Date: 20070709
  Transmission Date: 20080115
  Serious: Yes (Death)
  Sender: FDA-Public Use
  Company Number: 158684USA

PATIENT
  Age: 51 Year
  Sex: Male

DRUGS (3)
  1. BACLOFEN [Suspect]
     Indication: MULTIPLE SCLEROSIS
     Dosage: 120 MG (40 MG, 3 IN 1 D), ORAL
     Route: 048
  2. MITOXANTRONE [Suspect]
     Indication: PROGRESSIVE MULTIPLE SCLEROSIS
     Dosage: BASED ON 12 MG PER METER SQUARED OF BODY SURFACE AREA (24 MG, 1 IN 3 M), INTRAVENOUS (NOT OTHERWISE
     Route: 042
     Dates: start: 20020108, end: 20031111
  3. AMANTADINE HCL [Concomitant]

REACTIONS (2)
  - MYOCARDIAL INFARCTION [None]
  - SUDDEN CARDIAC DEATH [None]
